FAERS Safety Report 9029182 (Version 3)
Quarter: 2013Q1

REPORT INFORMATION
  Report Type: Spontaneous
  Country: DE (occurrence: DE)
  Receive Date: 20130125
  Receipt Date: 20130221
  Transmission Date: 20140127
  Serious: Yes (Hospitalization)
  Sender: FDA-Public Use
  Company Number: DE-JNJFOC-20121201097

PATIENT
  Age: 6 Year
  Sex: Female
  Weight: 17.9 kg

DRUGS (1)
  1. TOPAMAX [Suspect]
     Indication: MYOCLONIC EPILEPSY
     Route: 048
     Dates: end: 20121205

REACTIONS (12)
  - Hospitalisation [Recovered/Resolved]
  - Depression [Recovered/Resolved]
  - Affective disorder [Recovered/Resolved]
  - Mental impairment [Recovered/Resolved]
  - Disturbance in attention [Recovered/Resolved]
  - Screaming [Recovered/Resolved]
  - Fluid intake reduced [Recovered/Resolved]
  - Pruritus [Recovered/Resolved]
  - Decreased appetite [Recovered/Resolved]
  - Insomnia [Recovered/Resolved]
  - Product quality issue [Unknown]
  - Scratch [Recovered/Resolved]
